FAERS Safety Report 19844385 (Version 1)
Quarter: 2021Q3

REPORT INFORMATION
  Report Type: Other
  Country: US (occurrence: US)
  Receive Date: 20210917
  Receipt Date: 20210917
  Transmission Date: 20211014
  Serious: No
  Sender: FDA-Public Use
  Company Number: US-ROCHE-2910028

PATIENT
  Age: 52 Year
  Sex: Female
  Weight: 45.85 kg

DRUGS (5)
  1. MEGACE [Concomitant]
     Active Substance: MEGESTROL ACETATE
  2. OCREVUS [Suspect]
     Active Substance: OCRELIZUMAB
     Indication: RELAPSING MULTIPLE SCLEROSIS
  3. OCREVUS [Suspect]
     Active Substance: OCRELIZUMAB
     Indication: RELAPSING-REMITTING MULTIPLE SCLEROSIS
     Dosage: YES
     Route: 042
     Dates: start: 2021
  4. BACLOFEN. [Concomitant]
     Active Substance: BACLOFEN
  5. REMERON [Concomitant]
     Active Substance: MIRTAZAPINE

REACTIONS (2)
  - Weight decreased [Recovered/Resolved]
  - COVID-19 [Not Recovered/Not Resolved]

NARRATIVE: CASE EVENT DATE: 20210830
